FAERS Safety Report 5726885-4 (Version None)
Quarter: 2008Q2

REPORT INFORMATION
  Report Type: 
  Country: None (occurrence: None)
  Receive Date: 20080502
  Receipt Date: 20080424
  Transmission Date: 20081010
  Serious: Yes (Other)
  Sender: FDA-Public Use
  Company Number: GB-ABBOTT-08P-167-0449028-00

PATIENT
  Sex: Male

DRUGS (1)
  1. HUMIRA [Suspect]
     Indication: ANKYLOSING SPONDYLITIS
     Route: 058
     Dates: start: 20070801

REACTIONS (9)
  - BALANCE DISORDER [None]
  - DIPLOPIA [None]
  - DYSSTASIA [None]
  - EAR DISCOMFORT [None]
  - HEAD DISCOMFORT [None]
  - INSOMNIA [None]
  - MALAISE [None]
  - TINNITUS [None]
  - VERTIGO [None]
